FAERS Safety Report 25587759 (Version 1)
Quarter: 2025Q3

REPORT INFORMATION
  Report Type: Spontaneous
  Country: EU (occurrence: EU)
  Receive Date: 20250721
  Receipt Date: 20250721
  Transmission Date: 20251021
  Serious: Yes (Other)
  Sender: PFIZER
  Company Number: None

PATIENT
  Age: 66 Year
  Sex: Male
  Weight: 71 kg

DRUGS (1)
  1. RITUXIMAB [Suspect]
     Active Substance: RITUXIMAB
     Indication: Waldenstrom^s macroglobulinaemia
     Dosage: 664 MG, EVERY 3 WEEKS
     Route: 042
     Dates: start: 20250404, end: 20250702

REACTIONS (7)
  - Vomiting [Recovered/Resolved]
  - Flushing [Recovered/Resolved]
  - Tremor [Unknown]
  - Pyrexia [Unknown]
  - Hypotension [Unknown]
  - Incorrect dose administered [Unknown]
  - Off label use [Unknown]

NARRATIVE: CASE EVENT DATE: 20250702
